FAERS Safety Report 4299767-5 (Version None)
Quarter: 2004Q1

REPORT INFORMATION
  Report Type: 
  Country: None (occurrence: None)
  Receive Date: 20040126
  Receipt Date: 20031113
  Transmission Date: 20041129
  Serious: No
  Sender: FDA-Public Use
  Company Number: USA031152583

PATIENT
  Age: 8 Year
  Sex: Male
  Weight: 35 kg

DRUGS (1)
  1. STRATTERA [Suspect]
     Indication: ATTENTION DEFICIT/HYPERACTIVITY DISORDER
     Dosage: 25 MG/DAY
     Dates: start: 20031102

REACTIONS (7)
  - COUGH [None]
  - DYSPEPSIA [None]
  - DYSPNOEA [None]
  - PHARYNGITIS STREPTOCOCCAL [None]
  - PYREXIA [None]
  - SOMNOLENCE [None]
  - VOMITING [None]
